FAERS Safety Report 8774080 (Version 5)
Quarter: 2013Q2

REPORT INFORMATION
  Report Type: Spontaneous
  Country: US (occurrence: US)
  Receive Date: 20120908
  Receipt Date: 20130606
  Transmission Date: 20140414
  Serious: Yes (Disabling, Other)
  Sender: FDA-Public Use
  Company Number: US-009507513-1208USA012030

PATIENT
  Sex: Female

DRUGS (7)
  1. FOSAMAX [Suspect]
     Indication: OSTEOPOROSIS
     Dosage: 10 MG, QD
     Route: 048
     Dates: start: 1996, end: 200806
  2. FOSAMAX [Suspect]
     Indication: OSTEOPENIA
     Dosage: 70 MG, QW
     Route: 048
     Dates: end: 200806
  3. ALENDRONATE SODIUM [Suspect]
     Indication: OSTEOPOROSIS PROPHYLAXIS
     Dosage: 70 MG, QW
     Dates: start: 20080717, end: 2010
  4. ALENDRONATE SODIUM [Suspect]
     Indication: OSTEOPOROSIS
  5. VITAMIN D (UNSPECIFIED) [Concomitant]
     Dosage: 3000 IU/KG, UNK
     Dates: start: 2001
  6. CALCIUM (UNSPECIFIED) (+) VITAMIN D (UNSPECIFIED) [Concomitant]
     Dosage: UNK
     Dates: start: 1990
  7. EVISTA [Concomitant]
     Dosage: UNK
     Dates: start: 1990

REACTIONS (17)
  - Femur fracture [Unknown]
  - Respiratory arrest [Unknown]
  - Impaired healing [Unknown]
  - Femur fracture [Recovering/Resolving]
  - Low turnover osteopathy [Unknown]
  - Labyrinthitis [Unknown]
  - Vertigo positional [Unknown]
  - Tonsillectomy [Unknown]
  - Appendicectomy [Unknown]
  - Hysterectomy [Unknown]
  - Oophorectomy bilateral [Unknown]
  - Hypertension [Unknown]
  - Treatment noncompliance [Unknown]
  - Drug therapeutic incompatibility [Unknown]
  - Drug hypersensitivity [Unknown]
  - Pain in extremity [Unknown]
  - Headache [Unknown]
